FAERS Safety Report 11497428 (Version 2)
Quarter: 2015Q3

REPORT INFORMATION
  Report Type: Report from Study
  Country: US (occurrence: US)
  Receive Date: 20150911
  Receipt Date: 20150930
  Transmission Date: 20151125
  Serious: No
  Sender: FDA-Public Use
  Company Number: US-AMGEN-USASP2015092938

PATIENT
  Age: 48 Year
  Sex: Male

DRUGS (2)
  1. ENBREL [Suspect]
     Active Substance: ETANERCEPT
     Indication: PSORIATIC ARTHROPATHY
     Dosage: UNK UNK, Q2WK
     Route: 065
     Dates: start: 20081002
  2. ENBREL [Suspect]
     Active Substance: ETANERCEPT
     Dosage: UNK, EVERY ONE AND A HALF WEEKS
     Route: 065

REACTIONS (2)
  - Intentional product misuse [Not Recovered/Not Resolved]
  - Musculoskeletal stiffness [Unknown]
